FAERS Safety Report 5840468-7 (Version None)
Quarter: 2008Q3

REPORT INFORMATION
  Report Type: 
  Country: None (occurrence: None)
  Receive Date: 20080807
  Receipt Date: 20080807
  Transmission Date: 20090109
  Serious: Yes (Other)
  Sender: FDA-Public Use
  Company Number: None

PATIENT
  Age: 37 Year
  Sex: Female
  Weight: 59.8748 kg

DRUGS (1)
  1. LOESTRIN 1.5/0.03 [Suspect]
     Indication: ORAL CONTRACEPTION
     Dosage: 1 DAILY PO
     Route: 048
     Dates: start: 20070701, end: 20080807

REACTIONS (1)
  - PHOTODERMATOSIS [None]
